FAERS Safety Report 9199359 (Version 1)
Quarter: 2013Q1

REPORT INFORMATION
  Report Type: Spontaneous
  Country: FR (occurrence: None)
  Receive Date: 20130326
  Receipt Date: 20130326
  Transmission Date: 20140127
  Serious: Yes (Hospitalization)
  Sender: FDA-Public Use
  Company Number: 2013CP000020

PATIENT
  Age: 79 Year
  Sex: Male

DRUGS (1)
  1. ABSTRAL [Suspect]
     Indication: PAIN
     Route: 060

REACTIONS (3)
  - Arthralgia [None]
  - Oropharyngeal pain [None]
  - Throat tightness [None]
